FAERS Safety Report 21831305 (Version 1)
Quarter: 2023Q1

REPORT INFORMATION
  Report Type: Other
  Country: CA (occurrence: CA)
  Receive Date: 20230106
  Receipt Date: 20230106
  Transmission Date: 20230417
  Serious: Yes (Other)
  Sender: FDA-Public Use
  Company Number: CA-GLENMARK PHARMACEUTICALS-2023GMK077546

PATIENT

DRUGS (10)
  1. GABAPENTIN [Suspect]
     Active Substance: GABAPENTIN
     Indication: Foetal exposure during pregnancy
     Dosage: UNK
     Route: 064
  2. ASPIRIN [Suspect]
     Active Substance: ASPIRIN
     Indication: Foetal exposure during pregnancy
     Dosage: UNK
     Route: 064
  3. BETAMETHASONE [Suspect]
     Active Substance: BETAMETHASONE
     Indication: Foetal exposure during pregnancy
     Dosage: UNK
     Route: 064
  4. FUROSEMIDE [Suspect]
     Active Substance: FUROSEMIDE
     Indication: Foetal exposure during pregnancy
     Dosage: UNK
     Route: 064
  5. HEPARIN [Suspect]
     Active Substance: HEPARIN SODIUM
     Indication: Foetal exposure during pregnancy
     Dosage: UNK
     Route: 064
  6. LABETALOL [Suspect]
     Active Substance: LABETALOL\LABETALOL HYDROCHLORIDE
     Indication: Foetal exposure during pregnancy
     Dosage: UNK
     Route: 064
  7. METOCLOPRAMIDE [Suspect]
     Active Substance: METOCLOPRAMIDE
     Indication: Foetal exposure during pregnancy
     Dosage: UNK
     Route: 064
  8. MIRTAZAPINE [Suspect]
     Active Substance: MIRTAZAPINE
     Indication: Foetal exposure during pregnancy
     Dosage: UNK
     Route: 064
  9. NIFEDIPINE [Suspect]
     Active Substance: NIFEDIPINE
     Indication: Foetal exposure during pregnancy
     Dosage: UNK
     Route: 064
  10. ONDANSETRON [Suspect]
     Active Substance: ONDANSETRON
     Indication: Foetal exposure during pregnancy
     Dosage: UNK
     Route: 064

REACTIONS (3)
  - Premature baby [Unknown]
  - Low birth weight baby [Unknown]
  - Foetal exposure during pregnancy [Unknown]
